FAERS Safety Report 8663066 (Version 2)
Quarter: 2014Q1

REPORT INFORMATION
  Report Type: Spontaneous
  Country: US (occurrence: US)
  Receive Date: 20120713
  Receipt Date: 20140220
  Transmission Date: 20141002
  Serious: Yes (Other)
  Sender: FDA-Public Use
  Company Number: US-AMGEN-USASP2012042716

PATIENT
  Age: 69 Year
  Sex: Female

DRUGS (1)
  1. ENBREL [Suspect]
     Indication: RHEUMATOID ARTHRITIS
     Dosage: 50 MG, QWK
     Route: 065
     Dates: start: 20040801

REACTIONS (6)
  - Corneal disorder [Recovered/Resolved]
  - Glaucoma [Recovered/Resolved]
  - Ophthalmic herpes zoster [Not Recovered/Not Resolved]
  - Visual impairment [Not Recovered/Not Resolved]
  - Post procedural complication [Unknown]
  - Herpes zoster [Recovered/Resolved]
